FAERS Safety Report 4813195-2 (Version None)
Quarter: 2005Q4

REPORT INFORMATION
  Report Type: 
  Country: None (occurrence: None)
  Receive Date: 20051028
  Receipt Date: 20050407
  Transmission Date: 20060501
  Serious: No
  Sender: FDA-Public Use
  Company Number: US-GLAXOSMITHKLINE-A0553218A

PATIENT
  Age: 37 Year
  Sex: Female

DRUGS (2)
  1. ADVAIR DISKUS 100/50 [Suspect]
     Indication: PNEUMONIA
     Dosage: 1PUFF TWICE PER DAY
     Route: 055
     Dates: start: 20041201
  2. PREDNISONE [Concomitant]

REACTIONS (7)
  - ABDOMINAL DISTENSION [None]
  - APHONIA [None]
  - CANDIDIASIS [None]
  - DYSPHONIA [None]
  - FATIGUE [None]
  - GASTRIC DISORDER [None]
  - WEIGHT INCREASED [None]
